FAERS Safety Report 9834958 (Version 1)
Quarter: 2014Q1

REPORT INFORMATION
  Report Type: Spontaneous
  Country: SI (occurrence: SI)
  Receive Date: 20140122
  Receipt Date: 20140122
  Transmission Date: 20141002
  Serious: Yes (Other)
  Sender: FDA-Public Use
  Company Number: SI-TEVA-456999ISR

PATIENT
  Age: 57 Year
  Sex: Female

DRUGS (1)
  1. OKSALIPLATIN TEVA 5 MG/ML KONCENTRAT ZA RAZTOPINO ZA INFUNDIRANJE [Suspect]
     Dosage: 167 MG
     Route: 042
     Dates: start: 20131216, end: 20131216

REACTIONS (8)
  - Infusion related reaction [Recovered/Resolved]
  - Muscle spasms [Recovered/Resolved]
  - Asthenia [Recovered/Resolved]
  - Blepharospasm [Recovered/Resolved]
  - Speech disorder [Recovered/Resolved]
  - Muscle contracture [None]
  - Sensory loss [None]
  - Speech disorder [None]
